FAERS Safety Report 13258836 (Version 1)
Quarter: 2017Q1

REPORT INFORMATION
  Report Type: Spontaneous
  Country: US (occurrence: US)
  Receive Date: 20170220
  Receipt Date: 20170220
  Transmission Date: 20170428
  Serious: Yes (Hospitalization)
  Sender: FDA-Public Use
  Company Number: None

PATIENT
  Age: 76 Year
  Sex: Female
  Weight: 82.6 kg

DRUGS (1)
  1. REGORAFENIB 160MG BAYER [Suspect]
     Active Substance: REGORAFENIB
     Indication: COLON CANCER METASTATIC
     Dosage: NOT STARTED YET
     Route: 048

REACTIONS (2)
  - Hyponatraemia [None]
  - Hyperkalaemia [None]

NARRATIVE: CASE EVENT DATE: 20170217
